FAERS Safety Report 13687251 (Version 1)
Quarter: 2017Q2

REPORT INFORMATION
  Report Type: Spontaneous
  Country: GB (occurrence: GB)
  Receive Date: 20170623
  Receipt Date: 20170623
  Transmission Date: 20170830
  Serious: Yes (Other)
  Sender: FDA-Public Use
  Company Number: GB-BAXTER-2017BAX024816

PATIENT
  Age: 74 Year
  Sex: Male

DRUGS (18)
  1. CYCLOPHOSPHAMIDE INJECTION 1G [Suspect]
     Active Substance: CYCLOPHOSPHAMIDE
     Indication: MANTLE CELL LYMPHOMA
     Dosage: DOSAGE FORM: UNSPECIFIED, FULL DOSES OF 4 CYCLES OF R-CHOP THERAPY
     Route: 065
  2. CYCLOPHOSPHAMIDE INJECTION 1G [Suspect]
     Active Substance: CYCLOPHOSPHAMIDE
     Dosage: DOSAGE FORM: UNSPECIFIED, 2 CYCLES OF R-CHOP THERAPY
     Route: 065
  3. DOXORUBICIN HYDROCHLORIDE. [Suspect]
     Active Substance: DOXORUBICIN HYDROCHLORIDE
     Dosage: LIPOSOME INJECTION, 2 CYCLES OF R-CHOP THERAPY
     Route: 065
  4. RITUXIMAB [Suspect]
     Active Substance: RITUXIMAB
     Indication: MANTLE CELL LYMPHOMA
     Dosage: DOSAGE FORM: UNSPECIFIED, FULL DOSES OF 4 CYCLES OF R-CHOP THERAPY
     Route: 065
  5. RITUXIMAB [Suspect]
     Active Substance: RITUXIMAB
     Dosage: DOSAGE FORM: UNSPECIFIED, 2 CYCLES OF R-CHOP THERAPY
     Route: 065
  6. RITUXIMAB [Suspect]
     Active Substance: RITUXIMAB
     Dosage: DOSAGE FORM: UNSPECIFIED, THE DOSE OF R-CHOP THERAPY WAS REDUCED TO 4 CYCLES OF R-MINI CHOP
     Route: 065
  7. RITUXIMAB [Suspect]
     Active Substance: RITUXIMAB
     Dosage: MAINTENANCE THERAPY
     Route: 065
  8. DEXAMETHASONE. [Suspect]
     Active Substance: DEXAMETHASONE
     Indication: MANTLE CELL LYMPHOMA
     Dosage: DOSAGE FORM: UNSPECIFIED, FULL DOSES OF 4 CYCLES OF R-CHOP THERAPY
     Route: 065
  9. CYCLOPHOSPHAMIDE INJECTION 1G [Suspect]
     Active Substance: CYCLOPHOSPHAMIDE
     Dosage: DOSAGE FORM: UNSPECIFIED, THE DOSE OF R-CHOP THERAPY WAS REDUCED TO 4 CYCLES OF R-MINI CHOP
     Route: 065
  10. DOXORUBICIN HYDROCHLORIDE. [Suspect]
     Active Substance: DOXORUBICIN HYDROCHLORIDE
     Dosage: LIPOSOME INJECTION, THE DOSE OF R-CHOP THERAPY WAS REDUCED TO 4 CYCLES OF R-MINI CHOP
     Route: 065
  11. PREDNISOLONE. [Suspect]
     Active Substance: PREDNISOLONE
     Indication: MANTLE CELL LYMPHOMA
     Dosage: DOSAGE FORM: UNSPECIFIED, FULL DOSES OF 4 CYCLES OF R-CHOP THERAPY
     Route: 065
  12. DOXORUBICIN HYDROCHLORIDE. [Suspect]
     Active Substance: DOXORUBICIN HYDROCHLORIDE
     Indication: MANTLE CELL LYMPHOMA
     Dosage: LIPOSOME INJECTION, FULL DOSES OF 4 CYCLES OF R-CHOP THERAPY
     Route: 065
  13. VINCRISTINE [Suspect]
     Active Substance: VINCRISTINE
     Indication: MANTLE CELL LYMPHOMA
     Dosage: DOSAGE FORM: UNSPECIFIED, FULL DOSES OF 4 CYCLES OF R-CHOP THERAPY
     Route: 065
  14. VINCRISTINE [Suspect]
     Active Substance: VINCRISTINE
     Dosage: DOSAGE FORM: UNSPECIFIED, 2 CYCLES OF R-CHOP THERAPY
     Route: 065
  15. VINCRISTINE [Suspect]
     Active Substance: VINCRISTINE
     Dosage: DOSAGE FORM: UNSPECIFIED, THE DOSE OF R-CHOP THERAPY WAS REDUCED TO 4 CYCLES OF R-MINI CHOP
     Route: 065
  16. PREDNISOLONE. [Suspect]
     Active Substance: PREDNISOLONE
     Dosage: DOSAGE FORM: UNSPECIFIED, 2 CYCLES OF R-CHOP THERAPY
     Route: 065
  17. PREDNISOLONE. [Suspect]
     Active Substance: PREDNISOLONE
     Dosage: DOSAGE FORM: UNSPECIFIED, THE DOSE OF R-CHOP THERAPY WAS REDUCED TO 4 CYCLES OF R-MINI CHOP
     Route: 065
  18. METFORMIN [Concomitant]
     Active Substance: METFORMIN HYDROCHLORIDE
     Indication: TYPE 2 DIABETES MELLITUS
     Dosage: DOSAGE FORM: UNSPECIFIED
     Route: 065

REACTIONS (4)
  - Vomiting projectile [Unknown]
  - Neutropenic sepsis [Recovered/Resolved]
  - Stomach mass [Unknown]
  - Malaise [Recovered/Resolved]
